FAERS Safety Report 6920866-0 (Version None)
Quarter: 2010Q3

REPORT INFORMATION
  Report Type: 
  Country: None (occurrence: None)
  Receive Date: 20100812
  Receipt Date: 20100804
  Transmission Date: 20110219
  Serious: Yes (Other)
  Sender: FDA-Public Use
  Company Number: US-BAXTER-2010BH021238

PATIENT
  Age: 21 Year
  Sex: Female
  Weight: 57 kg

DRUGS (18)
  1. GAMMAGARD LIQUID [Suspect]
     Indication: IMMUNODEFICIENCY COMMON VARIABLE
     Route: 042
     Dates: start: 20100101, end: 20100101
  2. GAMMAGARD LIQUID [Suspect]
     Indication: PRIMARY IMMUNODEFICIENCY SYNDROME
     Route: 042
     Dates: start: 20100101, end: 20100101
  3. GAMMAGARD LIQUID [Suspect]
     Route: 042
     Dates: start: 20100729, end: 20100729
  4. GAMMAGARD LIQUID [Suspect]
     Route: 042
     Dates: start: 20100729, end: 20100729
  5. ADVAIR DISKUS 100/50 [Concomitant]
     Indication: ASTHMA
     Route: 055
  6. ALBUTEROL [Concomitant]
     Indication: ASTHMA
  7. ZYRTEC [Concomitant]
     Indication: ASTHMA
     Route: 048
  8. ACETAMINOPHEN [Concomitant]
     Indication: PREMEDICATION
  9. DIPHENHYDRAMINE [Concomitant]
     Indication: PREMEDICATION
  10. LEVOTHYROXINE [Concomitant]
     Indication: THYROID DISORDER
     Route: 048
  11. PANTOPRAZOLE [Concomitant]
     Route: 048
  12. SINGULAIR [Concomitant]
     Indication: ASTHMA
     Route: 048
  13. TRAMADOL HYDROCHLORIDE [Concomitant]
     Indication: RESTLESSNESS
     Route: 048
  14. METHOCARBAMOL [Concomitant]
     Indication: MUSCLE SPASMS
     Route: 048
  15. AZELASTINE HCL [Concomitant]
  16. FLUCONAZOLE [Concomitant]
  17. SPRINTEC [Concomitant]
  18. FLUTICASONE PROPIONATE [Concomitant]

REACTIONS (4)
  - BLOOD PRESSURE INCREASED [None]
  - BODY TEMPERATURE INCREASED [None]
  - FATIGUE [None]
  - MALAISE [None]
